FAERS Safety Report 5754635-4 (Version None)
Quarter: 2008Q2

REPORT INFORMATION
  Report Type: 
  Country: None (occurrence: None)
  Receive Date: 20080530
  Receipt Date: 20080520
  Transmission Date: 20081010
  Serious: Yes (Other)
  Sender: FDA-Public Use
  Company Number: EG-PFIZER INC-2008043484

PATIENT
  Age: 60 Year
  Sex: Male

DRUGS (6)
  1. LIPITOR [Suspect]
     Indication: HYPERCHOLESTEROLAEMIA
     Route: 048
  2. PLAVIX [Concomitant]
     Dosage: DAILY DOSE:75MG-FREQ:DAILY
     Route: 048
  3. ASPOCID [Concomitant]
     Route: 048
  4. ALL OTHER THERAPEUTIC PRODUCTS [Concomitant]
     Indication: ISCHAEMIA
     Dosage: DAILY DOSE:60MG-FREQ:DAILY
     Route: 048
  5. NORVASC [Concomitant]
     Indication: HYPERTENSION
     Dosage: DAILY DOSE:10MG-FREQ:DAILY
     Route: 048
  6. INSULIN [Concomitant]
     Indication: DIABETES MELLITUS

REACTIONS (6)
  - BONE PAIN [None]
  - FATIGUE [None]
  - HEPATIC STEATOSIS [None]
  - JAUNDICE [None]
  - MYALGIA [None]
  - PYREXIA [None]
